FAERS Safety Report 9550175 (Version 3)
Quarter: 2014Q2

REPORT INFORMATION
  Report Type: Spontaneous
  Country: JP (occurrence: JP)
  Receive Date: 20130924
  Receipt Date: 20140603
  Transmission Date: 20141212
  Serious: Yes (Hospitalization, Other)
  Sender: FDA-Public Use
  Company Number: PHHY2013JP106066

PATIENT
  Age: 65 Year
  Sex: Male

DRUGS (4)
  1. TEGRETOL [Suspect]
     Indication: TRIGEMINAL NEURALGIA
     Dosage: 100 MG, DAILY
     Route: 048
     Dates: end: 20130925
  2. GABAPEN [Suspect]
     Dosage: 600 MG, DAILY
     Route: 048
     Dates: end: 20130929
  3. LYRICA [Suspect]
     Indication: TRIGEMINAL NEURALGIA
     Dosage: 150 MG, DAILY
     Route: 048
  4. LYRICA [Suspect]
     Dosage: 300 MG, DAILY
     Route: 048

REACTIONS (6)
  - C-reactive protein increased [Recovering/Resolving]
  - Pyrexia [Unknown]
  - Autoimmune disorder [Unknown]
  - White blood cell count increased [Unknown]
  - Still^s disease adult onset [Unknown]
  - Hepatic function abnormal [Recovering/Resolving]
